FAERS Safety Report 22991386 (Version 8)
Quarter: 2024Q3

REPORT INFORMATION
  Report Type: Report from Study
  Country: US (occurrence: US)
  Receive Date: 20230927
  Receipt Date: 20240712
  Transmission Date: 20241016
  Serious: Yes (Other)
  Sender: UCB
  Company Number: US-UCBSA-2023028436

PATIENT
  Sex: Male

DRUGS (8)
  1. LACOSAMIDE [Suspect]
     Active Substance: LACOSAMIDE
     Indication: Seizure
     Dosage: 200 MILLIGRAM, 2X/DAY (BID)
  2. LACOSAMIDE [Suspect]
     Active Substance: LACOSAMIDE
     Dosage: 200 MG TWICE DAILY AND 100 MG AT 2PM
  3. LACOSAMIDE [Suspect]
     Active Substance: LACOSAMIDE
     Dosage: 100 MILLIGRAM
  4. BRIVIACT [Suspect]
     Active Substance: BRIVARACETAM
     Indication: Seizure
     Dosage: 100 MILLIGRAM
  5. BRIVIACT [Suspect]
     Active Substance: BRIVARACETAM
     Dosage: 50MG + 100MG- 1 TAB EACH 2X/DAY (BID)
  6. BRIVIACT [Suspect]
     Active Substance: BRIVARACETAM
     Dosage: 100 MILLIGRAM
  7. NAYZILAM [Suspect]
     Active Substance: MIDAZOLAM
     Indication: Seizure
     Dosage: UNK, SPRAY
  8. NAYZILAM [Suspect]
     Active Substance: MIDAZOLAM
     Indication: Aura
     Dosage: 5 MILLIGRAM, AS NEEDED (PRN)

REACTIONS (13)
  - Seizure [Not Recovered/Not Resolved]
  - Focal dyscognitive seizures [Not Recovered/Not Resolved]
  - Aura [Unknown]
  - Stress [Not Recovered/Not Resolved]
  - Communication disorder [Unknown]
  - General physical health deterioration [Unknown]
  - Complication associated with device [Not Recovered/Not Resolved]
  - Anxiety [Unknown]
  - Headache [Unknown]
  - Life expectancy shortened [Unknown]
  - Overdose [Unknown]
  - Product use issue [Unknown]
  - Product use in unapproved indication [Unknown]

NARRATIVE: CASE EVENT DATE: 20230101
